FAERS Safety Report 15114029 (Version 3)
Quarter: 2023Q2

REPORT INFORMATION
  Report Type: Report from Study
  Country: JP (occurrence: JP)
  Receive Date: 20180706
  Receipt Date: 20230620
  Transmission Date: 20230722
  Serious: Yes (Death, Other)
  Sender: FDA-Public Use
  Company Number: JP-CHUGAI-A2018030113ROCHE

PATIENT
  Age: 6 Year
  Sex: Male

DRUGS (17)
  1. TOCILIZUMAB [Suspect]
     Active Substance: TOCILIZUMAB
     Indication: Cytokine release syndrome
     Dosage: UNCERTAINTY
     Route: 041
     Dates: start: 20171103, end: 20171103
  2. TISAGENLECLEUCEL [Suspect]
     Active Substance: TISAGENLECLEUCEL
     Indication: Acute lymphocytic leukaemia
     Dosage: UNCERTAINTY
     Route: 065
     Dates: start: 20171023
  3. ACETAMINOPHEN [Concomitant]
     Active Substance: ACETAMINOPHEN
     Indication: Cytokine release syndrome
  4. METOCLOPRAMIDE [Concomitant]
     Active Substance: METOCLOPRAMIDE
     Indication: Cytokine release syndrome
  5. ANTITHROMBIN III HUMAN [Concomitant]
     Active Substance: ANTITHROMBIN III HUMAN
     Indication: Cytokine release syndrome
  6. ALBUMIN HUMAN [Concomitant]
     Active Substance: ALBUMIN HUMAN
     Indication: Cytokine release syndrome
  7. NICARDIPINE [Concomitant]
     Active Substance: NICARDIPINE
     Indication: Hypertension
  8. CYCLOPHOSPHAMIDE [Concomitant]
     Active Substance: CYCLOPHOSPHAMIDE
     Dates: start: 20170925, end: 20170926
  9. FLUDARABINE [Concomitant]
     Active Substance: FLUDARABINE PHOSPHATE
     Dates: start: 20170925, end: 20170928
  10. ASPARAGINASE [Concomitant]
     Active Substance: ASPARAGINASE
     Dates: start: 20180219, end: 20180406
  11. BORTEZOMIB [Concomitant]
     Active Substance: BORTEZOMIB
     Dates: start: 20180207, end: 20180405
  12. CYCLOPHOSPHAMIDE [Concomitant]
     Active Substance: CYCLOPHOSPHAMIDE
     Dates: start: 20180208, end: 20180327
  13. CYTARABINE [Concomitant]
     Active Substance: CYTARABINE
     Dates: start: 20180205, end: 20180406
  14. DAUNORUBICIN [Concomitant]
     Active Substance: DAUNORUBICIN
     Dates: start: 20180214, end: 20180329
  15. METHOTREXATE [Concomitant]
     Active Substance: METHOTREXATE
     Dates: start: 20180205, end: 20180406
  16. PREDNISOLONE [Concomitant]
     Active Substance: PREDNISOLONE
     Dosage: ONGOING AT THE TIE OF DATA CUT OFF
     Dates: start: 20180205
  17. VINCRISTINE [Concomitant]
     Active Substance: VINCRISTINE
     Dates: start: 20180207, end: 20180402

REACTIONS (6)
  - Death [Fatal]
  - Hypoxia [Recovered/Resolved]
  - Cardiac dysfunction [Recovered/Resolved]
  - Pancreatitis [Recovered/Resolved]
  - Neutrophil count decreased [Recovered/Resolved]
  - White blood cell count decreased [Recovered/Resolved]

NARRATIVE: CASE EVENT DATE: 20171103
